FAERS Safety Report 20481304 (Version 4)
Quarter: 2022Q2

REPORT INFORMATION
  Report Type: Report from Study
  Country: CN (occurrence: CN)
  Receive Date: 20220216
  Receipt Date: 20220401
  Transmission Date: 20220720
  Serious: Yes (Hospitalization)
  Sender: FDA-Public Use
  Company Number: CN-GILEAD-2022-0570011

PATIENT
  Sex: Male
  Weight: 61 kg

DRUGS (1)
  1. BICTEGRAVIR\EMTRICITABINE\TENOFOVIR ALAFENAMIDE [Suspect]
     Active Substance: BICTEGRAVIR\EMTRICITABINE\TENOFOVIR ALAFENAMIDE
     Indication: HIV infection
     Dosage: 1 DOSAGE FORM, QD
     Route: 048
     Dates: start: 20220112

REACTIONS (3)
  - Drug-induced liver injury [Recovered/Resolved]
  - Hepatic steatosis [Not Recovered/Not Resolved]
  - Chronic gastritis [Not Recovered/Not Resolved]

NARRATIVE: CASE EVENT DATE: 20220101
